FAERS Safety Report 15593217 (Version 2)
Quarter: 2018Q4

REPORT INFORMATION
  Report Type: Report from Study
  Country: US (occurrence: US)
  Receive Date: 20181106
  Receipt Date: 20181203
  Transmission Date: 20190205
  Serious: Yes (Other)
  Sender: FDA-Public Use
  Company Number: US-ACTELION-A-NJ2018-170579

PATIENT
  Age: 61 Year
  Sex: Female
  Weight: 28.57 kg

DRUGS (3)
  1. ESBRIET [Concomitant]
     Active Substance: PIRFENIDONE
  2. TRACLEER [Suspect]
     Active Substance: BOSENTAN
     Indication: PULMONARY ARTERIAL HYPERTENSION
     Dosage: 62.5 MG, BID
     Route: 048
  3. ADCIRCA [Concomitant]
     Active Substance: TADALAFIL

REACTIONS (2)
  - Lung transplant [Unknown]
  - Rash [Unknown]
